FAERS Safety Report 20198252 (Version 2)
Quarter: 2022Q1

REPORT INFORMATION
  Report Type: Report from Study
  Country: US (occurrence: US)
  Receive Date: 20211217
  Receipt Date: 20220131
  Transmission Date: 20220424
  Serious: Yes (Other)
  Sender: FDA-Public Use
  Company Number: US-ABBVIE-21K-163-4200537-00

PATIENT
  Age: 75 Year
  Sex: Female
  Weight: 81.720 kg

DRUGS (12)
  1. RINVOQ [Suspect]
     Active Substance: UPADACITINIB
     Indication: Rheumatoid arthritis
     Dosage: A YEAR AND A HALF TO TWO YEARS
     Route: 048
     Dates: end: 2020
  2. RINVOQ [Suspect]
     Active Substance: UPADACITINIB
     Dosage: A YEAR AND A HALF TO TWO YEARS
     Route: 048
     Dates: start: 2020
  3. MODERNA COVID-19 VACCINE [Concomitant]
     Active Substance: ELASOMERAN
     Indication: COVID-19 immunisation
     Dosage: FIRST DOSE
     Route: 030
     Dates: start: 20210416, end: 20210416
  4. MODERNA COVID-19 VACCINE [Concomitant]
     Active Substance: ELASOMERAN
     Dosage: SECOND DOSE
     Route: 030
     Dates: start: 20210514, end: 20210514
  5. LISINOPRIL [Concomitant]
     Active Substance: LISINOPRIL
     Indication: Hypertension
  6. AMLODIPINE [Concomitant]
     Active Substance: AMLODIPINE BESYLATE
     Indication: Hypertension
  7. HYDROCHLOROTHIAZIDE [Concomitant]
     Active Substance: HYDROCHLOROTHIAZIDE
     Indication: Hypertension
  8. GABAPENTIN [Concomitant]
     Active Substance: GABAPENTIN
     Indication: Neuropathy peripheral
  9. CYCLOBENZAPRINE [Concomitant]
     Active Substance: CYCLOBENZAPRINE
     Indication: Neuropathy peripheral
  10. TRAMADOL [Concomitant]
     Active Substance: TRAMADOL
     Indication: Pain
  11. CALCIUM [Concomitant]
     Active Substance: CALCIUM
     Indication: Supplementation therapy
  12. VITAMIN D3 [Concomitant]
     Active Substance: CHOLECALCIFEROL
     Indication: Supplementation therapy

REACTIONS (9)
  - Shoulder operation [Recovering/Resolving]
  - SARS-CoV-2 test positive [Recovered/Resolved]
  - Rotator cuff syndrome [Recovering/Resolving]
  - Fall [Recovering/Resolving]
  - Procedural pain [Recovering/Resolving]
  - Osteoarthritis [Recovering/Resolving]
  - Cough [Recovered/Resolved]
  - Fatigue [Recovered/Resolved]
  - Nausea [Recovered/Resolved]

NARRATIVE: CASE EVENT DATE: 20200201
